FAERS Safety Report 14008936 (Version 1)
Quarter: 2017Q3

REPORT INFORMATION
  Report Type: Spontaneous
  Country: US (occurrence: US)
  Receive Date: 20170925
  Receipt Date: 20170925
  Transmission Date: 20171128
  Serious: No
  Sender: FDA-Public Use
  Company Number: US-ASTRAZENECA-2017SE96349

PATIENT
  Age: 19 Year
  Sex: Male

DRUGS (7)
  1. PULMICORT RESPULES [Suspect]
     Active Substance: BUDESONIDE
     Indication: DYSPNOEA
     Route: 055
  2. XOPENEX [Concomitant]
     Active Substance: LEVALBUTEROL HYDROCHLORIDE
     Indication: DYSPNOEA
     Route: 055
  3. PULMICORT RESPULES [Suspect]
     Active Substance: BUDESONIDE
     Indication: DYSPNOEA
     Route: 055
  4. PULMICORT RESPULES [Suspect]
     Active Substance: BUDESONIDE
     Indication: DYSPNOEA
     Dosage: 0.5 MG, TWO TIMES A DAY, GENERIC
     Route: 065
  5. PULMICORT RESPULES [Suspect]
     Active Substance: BUDESONIDE
     Indication: DYSPNOEA
     Route: 055
  6. SALINE BULLET [Concomitant]
     Indication: DYSPNOEA
     Route: 055
  7. PULMICORT RESPULES [Suspect]
     Active Substance: BUDESONIDE
     Indication: DYSPNOEA
     Dosage: 1 MG, TWO TIMES A DAY, GENERIC
     Route: 065

REACTIONS (6)
  - Drug administered to patient of inappropriate age [Unknown]
  - Increased bronchial secretion [Recovering/Resolving]
  - Respiratory tract infection [Recovered/Resolved]
  - Off label use [Unknown]
  - Product use in unapproved indication [Unknown]
  - Off label use [Not Recovered/Not Resolved]

NARRATIVE: CASE EVENT DATE: 2017
